FAERS Safety Report 9620174 (Version 2)
Quarter: 2013Q4

REPORT INFORMATION
  Report Type: Spontaneous
  Country: US (occurrence: US)
  Receive Date: 20131014
  Receipt Date: 20131203
  Transmission Date: 20140711
  Serious: Yes (Hospitalization, Other)
  Sender: FDA-Public Use
  Company Number: US-TEVA-437455USA

PATIENT
  Age: 30 Year
  Sex: Female

DRUGS (4)
  1. PROVIGIL [Suspect]
     Indication: SOMNOLENCE
     Dosage: 200 MILLIGRAM DAILY;
     Route: 048
     Dates: start: 20130916, end: 20130928
  2. PROVIGIL [Suspect]
     Indication: NARCOLEPSY
  3. WELLBUTRIN [Concomitant]
     Indication: ANXIETY
     Dosage: 150 MILLIGRAM DAILY;
     Route: 048
  4. ZOLOFT [Concomitant]
     Dosage: 50 MILLIGRAM DAILY;

REACTIONS (32)
  - Stevens-Johnson syndrome [Not Recovered/Not Resolved]
  - Discomfort [Unknown]
  - Skin burning sensation [Unknown]
  - Eye swelling [Unknown]
  - Eye discharge [Unknown]
  - Lip blister [Unknown]
  - Lip swelling [Unknown]
  - Gastrointestinal inflammation [Unknown]
  - Oral mucosal exfoliation [Unknown]
  - Pain [Unknown]
  - Dysphagia [Unknown]
  - Diarrhoea [Unknown]
  - Weight decreased [Unknown]
  - Pyrexia [Unknown]
  - Genital lesion [Unknown]
  - Skin exfoliation [Unknown]
  - Pruritus [Unknown]
  - Scar [Unknown]
  - Ear swelling [Unknown]
  - Excoriation [Unknown]
  - Ear pain [Unknown]
  - Ear discomfort [Unknown]
  - Rash generalised [Unknown]
  - Asthenia [Unknown]
  - Influenza like illness [Unknown]
  - Vomiting [Unknown]
  - Oropharyngeal pain [Unknown]
  - Malaise [Unknown]
  - Crying [Unknown]
  - Skin lesion [Unknown]
  - Nasopharyngitis [Unknown]
  - Headache [Unknown]
